FAERS Safety Report 5066667-2 (Version None)
Quarter: 2006Q3

REPORT INFORMATION
  Report Type: 
  Country: None (occurrence: None)
  Receive Date: 20060714
  Receipt Date: 20060201
  Transmission Date: 20061208
  Serious: Yes (Other)
  Sender: FDA-Public Use
  Company Number: HQWYE643803FEB06

PATIENT
  Age: 41 Year
  Sex: Female
  Weight: 66.74 kg

DRUGS (1)
  1. ADVIL [Suspect]
     Indication: HEADACHE
     Dosage: 1 CAPLET, DAILY AT BEDTIME, ORAL
     Route: 048
     Dates: start: 20060129, end: 20060130

REACTIONS (3)
  - HYPERSENSITIVITY [None]
  - PRURITUS GENERALISED [None]
  - SWELLING FACE [None]
